FAERS Safety Report 13545614 (Version 2)
Quarter: 2017Q2

REPORT INFORMATION
  Report Type: Spontaneous
  Country: US (occurrence: US)
  Receive Date: 20170515
  Receipt Date: 20170531
  Transmission Date: 20170830
  Serious: No
  Sender: FDA-Public Use
  Company Number: US-PFIZER INC-2017211146

PATIENT
  Age: 88 Year
  Sex: Female

DRUGS (1)
  1. IBRANCE [Suspect]
     Active Substance: PALBOCICLIB
     Indication: INFLAMMATORY CARCINOMA OF THE BREAST
     Dosage: 75 MG, CYCLIC (DAILY FOR 21 DAYS)
     Route: 048
     Dates: start: 20170504, end: 201705

REACTIONS (4)
  - Eating disorder [Unknown]
  - Weight decreased [Unknown]
  - Asthenia [Unknown]
  - Immune system disorder [Unknown]
